FAERS Safety Report 7591743-X (Version None)
Quarter: 2011Q3

REPORT INFORMATION
  Report Type: 
  Country: None (occurrence: None)
  Receive Date: 20110706
  Receipt Date: 20110623
  Transmission Date: 20111222
  Serious: Yes (Hospitalization)
  Sender: FDA-Public Use
  Company Number: CA-US-EMD SERONO, INC.-7034790

PATIENT
  Sex: Female

DRUGS (8)
  1. FACSOMAX [Concomitant]
  2. AMANTADINE HCL [Concomitant]
  3. REBIF [Suspect]
     Indication: RELAPSING-REMITTING MULTIPLE SCLEROSIS
     Dates: start: 20101227, end: 20110527
  4. GABAPENTIN [Concomitant]
  5. DIAZEPAM [Concomitant]
  6. OXYBUTYNIN [Concomitant]
  7. CALCIUM CARBONATE [Concomitant]
  8. VITAMIN D [Concomitant]

REACTIONS (8)
  - NAUSEA [None]
  - FATIGUE [None]
  - INTESTINAL OBSTRUCTION [None]
  - HEADACHE [None]
  - MULTIPLE SCLEROSIS RELAPSE [None]
  - INCORRECT DOSE ADMINISTERED [None]
  - LIVER DISORDER [None]
  - VISUAL IMPAIRMENT [None]
